FAERS Safety Report 6091473-X (Version None)
Quarter: 2009Q1

REPORT INFORMATION
  Report Type: 
  Country: None (occurrence: None)
  Receive Date: 20090225
  Receipt Date: 20090217
  Transmission Date: 20090719
  Serious: Yes (Disabling)
  Sender: FDA-Public Use
  Company Number: BE-BAYER-200832393GPV

PATIENT
  Age: 40 Year
  Sex: Female

DRUGS (4)
  1. MIRENA [Suspect]
     Indication: CONTRACEPTION
     Route: 015
     Dates: end: 20060101
  2. YASMIN [Suspect]
     Indication: CONTRACEPTION
     Route: 065
  3. YASMIN [Suspect]
     Route: 065
     Dates: start: 20060101
  4. CYSTINE B6 [Concomitant]
     Indication: DRUG USE FOR UNKNOWN INDICATION
     Route: 065

REACTIONS (9)
  - ALOPECIA [None]
  - BLOOD TESTOSTERONE DECREASED [None]
  - DANDRUFF [None]
  - HAIR DISORDER [None]
  - HEADACHE [None]
  - HYPERAESTHESIA [None]
  - MENTAL DISORDER [None]
  - SKIN DISCOLOURATION [None]
  - VITAMIN B12 DECREASED [None]
